FAERS Safety Report 9678596 (Version 2)
Quarter: 2014Q1

REPORT INFORMATION
  Report Type: Spontaneous
  Country: BR (occurrence: BR)
  Receive Date: 20131108
  Receipt Date: 20140117
  Transmission Date: 20141002
  Serious: Yes (Hospitalization)
  Sender: FDA-Public Use
  Company Number: BR-ASTRAZENECA-2013SE80927

PATIENT
  Age: 73 Year
  Sex: Female
  Weight: 53 kg

DRUGS (4)
  1. BRILINTA [Suspect]
     Indication: MYOCARDIAL INFARCTION
     Route: 048
     Dates: start: 201305
  2. BRILINTA [Suspect]
     Indication: HYPERTENSION
     Route: 048
     Dates: start: 201305
  3. RASILEZ [Concomitant]
     Indication: BLOOD PRESSURE ABNORMAL
  4. RASILEZ [Concomitant]
     Indication: CARDIAC DISORDER

REACTIONS (1)
  - Myocardial infarction [Recovered/Resolved]
